FAERS Safety Report 18843433 (Version 1)
Quarter: 2021Q1

REPORT INFORMATION
  Report Type: Report from Study
  Country: US (occurrence: US)
  Receive Date: 20210203
  Receipt Date: 20210203
  Transmission Date: 20210419
  Serious: No
  Sender: FDA-Public Use
  Company Number: US-EXELIXIS-CABO-20030122

PATIENT
  Sex: Male
  Weight: 67.12 kg

DRUGS (15)
  1. IMODIUM [Concomitant]
     Active Substance: LOPERAMIDE HYDROCHLORIDE
  2. LUTEIN [Concomitant]
     Active Substance: LUTEIN
  3. RANITIDINE. [Concomitant]
     Active Substance: RANITIDINE
  4. OXYCODONE AND ACETAMINOPHEN [Concomitant]
     Active Substance: ACETAMINOPHEN\OXYCODONE HYDROCHLORIDE
  5. FLONASE [Concomitant]
     Active Substance: FLUTICASONE PROPIONATE
  6. VITAMIN D [Concomitant]
     Active Substance: VITAMIN D NOS
  7. HYDRALAZINE HCL [Concomitant]
     Active Substance: HYDRALAZINE HYDROCHLORIDE
  8. XGEVA [Concomitant]
     Active Substance: DENOSUMAB
  9. LOSARTAN POTASSIUM. [Concomitant]
     Active Substance: LOSARTAN POTASSIUM
  10. METOPROLOL TARTRATE. [Concomitant]
     Active Substance: METOPROLOL TARTRATE
  11. TYLENOL ARTHRITIS PAIN [Concomitant]
     Active Substance: ACETAMINOPHEN
     Indication: ARTHRITIS
  12. LORATADINE. [Concomitant]
     Active Substance: LORATADINE
  13. GABAPENTIN. [Concomitant]
     Active Substance: GABAPENTIN
  14. AMLODIPINE BESYLATE. [Concomitant]
     Active Substance: AMLODIPINE BESYLATE
  15. CABOMETYX [Suspect]
     Active Substance: CABOZANTINIB S-MALATE
     Indication: RENAL CELL CARCINOMA
     Dosage: 60 MG, QD
     Route: 048
     Dates: start: 20180313

REACTIONS (1)
  - Gastrooesophageal reflux disease [Unknown]
